FAERS Safety Report 17329791 (Version 4)
Quarter: 2020Q2

REPORT INFORMATION
  Report Type: Report from Study
  Country: CA (occurrence: CA)
  Receive Date: 20200128
  Receipt Date: 20200615
  Transmission Date: 20200713
  Serious: Yes (Other)
  Sender: FDA-Public Use
  Company Number: CA-JNJFOC-20191029186

PATIENT
  Sex: Male
  Weight: 106.59 kg

DRUGS (3)
  1. STELARA [Suspect]
     Active Substance: USTEKINUMAB
     Indication: CROHN^S DISEASE
     Route: 058
  2. STELARA [Suspect]
     Active Substance: USTEKINUMAB
     Route: 058
  3. STELARA [Suspect]
     Active Substance: USTEKINUMAB
     Route: 058
     Dates: start: 20200407

REACTIONS (4)
  - Crohn^s disease [Not Recovered/Not Resolved]
  - Herpes zoster [Recovering/Resolving]
  - Tooth extraction [Recovered/Resolved]
  - Drug ineffective [Unknown]
